FAERS Safety Report 20007079 (Version 2)
Quarter: 2021Q4

REPORT INFORMATION
  Report Type: Spontaneous
  Country: CA (occurrence: CA)
  Receive Date: 20211028
  Receipt Date: 20211029
  Transmission Date: 20220303
  Serious: Yes (Death, Life-Threatening, Hospitalization, Other)
  Sender: FDA-Public Use
  Company Number: CA-MLMSERVICE-20211014-3171576-1

PATIENT
  Age: 29 Year
  Sex: Male
  Weight: 89 kg

DRUGS (4)
  1. ALPRAZOLAM [Suspect]
     Active Substance: ALPRAZOLAM
     Dosage: UNK
  2. GABAPENTIN [Suspect]
     Active Substance: GABAPENTIN
     Dosage: UNK
  3. QUETIAPINE [Suspect]
     Active Substance: QUETIAPINE
     Dosage: UNK
  4. DULOXETINE [Concomitant]
     Active Substance: DULOXETINE
     Dosage: UNK

REACTIONS (2)
  - Overdose [Fatal]
  - Toxicity to various agents [Fatal]

NARRATIVE: CASE EVENT DATE: 20180101
